FAERS Safety Report 7011596-8 (Version None)
Quarter: 2010Q3

REPORT INFORMATION
  Report Type: 
  Country: None (occurrence: None)
  Receive Date: 20100923
  Receipt Date: 20090311
  Transmission Date: 20110219
  Serious: No
  Sender: FDA-Public Use
  Company Number: US-WYE-H08552909

PATIENT
  Sex: Male
  Weight: 59.02 kg

DRUGS (1)
  1. PREMARIN [Suspect]
     Dosage: 0.625 MG, SIX TABLETS A DAY FOR SEVEN DAYS
     Route: 048
     Dates: start: 20090226, end: 20090304

REACTIONS (4)
  - ANGER [None]
  - LOSS OF LIBIDO [None]
  - STRESS [None]
  - WRONG DRUG ADMINISTERED [None]
